FAERS Safety Report 24412077 (Version 3)
Quarter: 2024Q4

REPORT INFORMATION
  Report Type: Spontaneous
  Country: JP (occurrence: JP)
  Receive Date: 20241008
  Receipt Date: 20241018
  Transmission Date: 20250114
  Serious: Yes (Other)
  Sender: INCYTE
  Company Number: JP-INCYTE CORPORATION-2024IN010570

PATIENT

DRUGS (6)
  1. PEMAZYRE [Suspect]
     Active Substance: PEMIGATINIB
     Indication: Cholangiocarcinoma
     Dosage: 13.5 MILLIGRAM
     Route: 048
  2. PEMAZYRE [Suspect]
     Active Substance: PEMIGATINIB
     Dosage: 9 MILLIGRAM
     Route: 048
  3. PEMAZYRE [Suspect]
     Active Substance: PEMIGATINIB
     Dosage: 9 MILLIGRAM
     Route: 048
  4. PEMAZYRE [Suspect]
     Active Substance: PEMIGATINIB
     Dosage: 4.5 MILLIGRAM
     Route: 048
  5. PEMAZYRE [Suspect]
     Active Substance: PEMIGATINIB
     Dosage: 4.5 MILLIGRAM
     Route: 048
  6. PEMAZYRE [Suspect]
     Active Substance: PEMIGATINIB
     Dosage: 9 MILLIGRAM
     Route: 048

REACTIONS (4)
  - Renal impairment [Unknown]
  - Cholangiocarcinoma [Unknown]
  - Hepatic function abnormal [Unknown]
  - Disease progression [Unknown]
